FAERS Safety Report 7743129-2 (Version None)
Quarter: 2011Q3

REPORT INFORMATION
  Report Type: 
  Country: None (occurrence: None)
  Receive Date: 20110912
  Receipt Date: 20110908
  Transmission Date: 20111222
  Serious: Yes (Hospitalization)
  Sender: FDA-Public Use
  Company Number: FR-ROCHE-801377

PATIENT
  Sex: Male

DRUGS (2)
  1. NEXIUM [Suspect]
     Dosage: 40 MG TABLET
     Route: 048
     Dates: start: 20110707, end: 20110813
  2. ROCEPHIN [Suspect]
     Indication: OSTEITIS
     Route: 058
     Dates: start: 20110718, end: 20110813

REACTIONS (1)
  - FEBRILE BONE MARROW APLASIA [None]
